FAERS Safety Report 4964629-4 (Version None)
Quarter: 2006Q2

REPORT INFORMATION
  Report Type: 
  Country: None (occurrence: None)
  Receive Date: 20060406
  Receipt Date: 20051027
  Transmission Date: 20061013
  Serious: Yes (Hospitalization)
  Sender: FDA-Public Use
  Company Number: US-MERCK-0510USA09960

PATIENT
  Age: 46 Year
  Sex: Male
  Weight: 85 kg

DRUGS (11)
  1. VIOXX [Suspect]
     Indication: OSTEOARTHRITIS
     Route: 048
     Dates: start: 20030101, end: 20040930
  2. VIOXX [Suspect]
     Route: 048
     Dates: start: 20030101, end: 20040930
  3. COUMADIN [Concomitant]
     Route: 065
  4. PLAVIX [Concomitant]
     Route: 065
  5. LIPITOR [Concomitant]
     Route: 065
  6. AMBIEN [Concomitant]
     Route: 065
  7. ZOCOR [Concomitant]
     Route: 065
  8. CENTRUM PERFORMANCE [Concomitant]
     Route: 065
  9. GLUCOSAMINE [Concomitant]
     Route: 065
  10. ASPIRIN [Concomitant]
     Route: 065
  11. CELLUVISC [Concomitant]
     Route: 065

REACTIONS (5)
  - CEREBRAL ARTERY OCCLUSION [None]
  - CEREBROVASCULAR ACCIDENT [None]
  - CEREBROVASCULAR DISORDER [None]
  - EMOTIONAL DISTRESS [None]
  - HYPERTENSION [None]
